FAERS Safety Report 15155903 (Version 1)
Quarter: 2018Q3

REPORT INFORMATION
  Report Type: Spontaneous
  Country: DE (occurrence: DE)
  Receive Date: 20180717
  Receipt Date: 20180717
  Transmission Date: 20181010
  Serious: Yes (Hospitalization)
  Sender: FDA-Public Use
  Company Number: DE-US WORLDMEDS, LLC-STA_00019583

PATIENT
  Age: 60 Year
  Sex: Female

DRUGS (11)
  1. MADOPAR LT [Concomitant]
     Active Substance: BENSERAZIDE HYDROCHLORIDE\LEVODOPA
  2. LEVOCOMP RET. [Concomitant]
  3. RIVOTRIL [Concomitant]
     Active Substance: CLONAZEPAM
  4. STANGYL [Concomitant]
     Active Substance: TRIMIPRAMINE MALEATE
     Dosage: HALF A TABLET
  5. TASMAR [Concomitant]
     Active Substance: TOLCAPONE
  6. DOMPERIDONE [Concomitant]
     Active Substance: DOMPERIDONE
  7. APOMORPHINE HYDROCHLORIDE [Suspect]
     Active Substance: APOMORPHINE HYDROCHLORIDE
     Indication: PARKINSON^S DISEASE
     Dosage: 5.5 MG/H FROM 07:00 AM TP 11:00 PM
     Dates: start: 200603, end: 20110427
  8. FOLIC ACID. [Concomitant]
     Active Substance: FOLIC ACID
  9. SEROQUEL XR [Concomitant]
     Active Substance: QUETIAPINE FUMARATE
  10. MADOPAR T [Concomitant]
     Active Substance: BENSERAZIDE HYDROCHLORIDE\LEVODOPA
  11. PANTOZOL [Concomitant]
     Active Substance: PANTOPRAZOLE SODIUM

REACTIONS (2)
  - Soft tissue necrosis [Not Recovered/Not Resolved]
  - Skin necrosis [Not Recovered/Not Resolved]

NARRATIVE: CASE EVENT DATE: 201102
